FAERS Safety Report 4326098-7 (Version None)
Quarter: 2004Q1

REPORT INFORMATION
  Report Type: 
  Country: None (occurrence: None)
  Receive Date: 20040324
  Receipt Date: 20040212
  Transmission Date: 20041129
  Serious: Yes (Death, Other)
  Sender: FDA-Public Use
  Company Number: 2004010170

PATIENT
  Age: 55 Year
  Sex: 0

DRUGS (1)
  1. ATARAX [Suspect]
     Indication: SEDATION
     Dosage: ORAL
     Route: 048
     Dates: end: 20040201

REACTIONS (2)
  - CONDITION AGGRAVATED [None]
  - DYSKINESIA [None]
